FAERS Safety Report 9342907 (Version 1)
Quarter: 2013Q2

REPORT INFORMATION
  Report Type: Spontaneous
  Country: CN (occurrence: CN)
  Receive Date: 20130611
  Receipt Date: 20130611
  Transmission Date: 20140414
  Serious: Yes (Other)
  Sender: FDA-Public Use
  Company Number: CN-GLAXOSMITHKLINE-B0898521A

PATIENT
  Age: 84 Year
  Sex: Male
  Weight: 80 kg

DRUGS (2)
  1. SALBUTAMOL SULPHATE [Suspect]
     Indication: BRONCHIAL DISORDER
     Dosage: 1ML THREE TIMES PER DAY
     Route: 055
     Dates: start: 20121122, end: 20121122
  2. AMBROXOL HYDROCHLORIDE [Concomitant]
     Route: 055

REACTIONS (3)
  - Tachycardia [Recovering/Resolving]
  - Wheezing [Recovering/Resolving]
  - Dyspnoea [Recovering/Resolving]
